FAERS Safety Report 9939397 (Version 1)
Quarter: 2014Q1

REPORT INFORMATION
  Report Type: Report from Study
  Country: US (occurrence: US)
  Receive Date: 20140303
  Receipt Date: 20140303
  Transmission Date: 20141002
  Serious: No
  Sender: FDA-Public Use
  Company Number: US-ABBVIE-13P-163-1038144-00

PATIENT
  Age: 42 Year
  Sex: Female

DRUGS (5)
  1. HUMIRA [Suspect]
     Indication: CROHN^S DISEASE
     Route: 058
     Dates: start: 20121015, end: 20121015
  2. HUMIRA [Suspect]
     Route: 058
     Dates: start: 20121029, end: 20121029
  3. HUMIRA [Suspect]
     Route: 058
     Dates: start: 20121112, end: 20121222
  4. ESTRADIOL [Concomitant]
     Indication: HORMONE REPLACEMENT THERAPY
  5. MERCAPTOPURINE [Concomitant]
     Indication: CROHN^S DISEASE

REACTIONS (6)
  - Ingrowing nail [Recovering/Resolving]
  - Local swelling [Recovered/Resolved]
  - Erythema [Recovering/Resolving]
  - Purulent discharge [Recovered/Resolved]
  - Injection site pain [Not Recovered/Not Resolved]
  - Bronchitis [Recovering/Resolving]
